FAERS Safety Report 5414423-5 (Version None)
Quarter: 2007Q3

REPORT INFORMATION
  Report Type: 
  Country: None (occurrence: None)
  Receive Date: 20070814
  Receipt Date: 20070806
  Transmission Date: 20080115
  Serious: Yes (Hospitalization)
  Sender: FDA-Public Use
  Company Number: GB-ABBOTT-07P-167-0367214-00

PATIENT
  Sex: Male
  Weight: 140 kg

DRUGS (4)
  1. KALETRA [Suspect]
     Indication: HIV INFECTION
     Route: 048
     Dates: start: 20070419, end: 20070518
  2. KALETRA [Suspect]
     Indication: HIV INFECTION
  3. LAMIVUDINE [Concomitant]
     Indication: HIV INFECTION
  4. MK 0518 (EXPERIMENTAL INTEGRASE INHIBITOR) [Concomitant]
     Indication: HIV INFECTION

REACTIONS (2)
  - DIARRHOEA [None]
  - MALABSORPTION [None]
